FAERS Safety Report 9423607 (Version 1)
Quarter: 2013Q3

REPORT INFORMATION
  Report Type: Report from Study
  Country: CA (occurrence: CA)
  Receive Date: 20130726
  Receipt Date: 20130726
  Transmission Date: 20140515
  Serious: Yes (Other)
  Sender: FDA-Public Use
  Company Number: CA-ABBOTT-13P-028-1124010-00

PATIENT
  Age: 57 Year
  Sex: Female

DRUGS (1)
  1. HUMIRA [Suspect]
     Indication: PSORIATIC ARTHROPATHY
     Route: 058
     Dates: start: 20070221

REACTIONS (4)
  - Brain injury [Not Recovered/Not Resolved]
  - Fall [Recovered/Resolved]
  - Skull fracture [Not Recovered/Not Resolved]
  - Road traffic accident [Unknown]
